FAERS Safety Report 9397876 (Version 1)
Quarter: 2013Q3

REPORT INFORMATION
  Report Type: Spontaneous
  Country: AU (occurrence: AU)
  Receive Date: 20130712
  Receipt Date: 20130712
  Transmission Date: 20140515
  Serious: Yes (Other)
  Sender: FDA-Public Use
  Company Number: PHHY2013AU072555

PATIENT
  Age: 85 Year
  Sex: Male

DRUGS (4)
  1. ZOLEDRONATE [Suspect]
  2. PARACETAMOL+CODEINE PHOSPHATE SANDOZ [Suspect]
  3. ENOXAPARIN [Suspect]
  4. PREDNISOLONE [Suspect]

REACTIONS (4)
  - Gastrointestinal haemorrhage [Unknown]
  - Glomerular filtration rate decreased [Unknown]
  - Tachycardia [Unknown]
  - Urticaria [Unknown]
